FAERS Safety Report 6708122-7 (Version None)
Quarter: 2010Q2

REPORT INFORMATION
  Report Type: 
  Country: None (occurrence: None)
  Receive Date: 20100503
  Receipt Date: 20090916
  Transmission Date: 20101027
  Serious: No
  Sender: FDA-Public Use
  Company Number: US-ASTRAZENECA-2009SE13551

PATIENT
  Age: 967 Month
  Sex: Female
  Weight: 83.9 kg

DRUGS (5)
  1. NEXIUM [Suspect]
     Indication: GASTROOESOPHAGEAL REFLUX DISEASE
     Dates: start: 20090801, end: 20090901
  2. REGLAN [Concomitant]
  3. ANTI ANXIETY MEDICATION [Concomitant]
  4. CHOLESTEROL MEDICATION [Concomitant]
  5. VITAMINS [Concomitant]

REACTIONS (3)
  - DYSGEUSIA [None]
  - GINGIVAL DISORDER [None]
  - RASH [None]
